FAERS Safety Report 5532911-8 (Version None)
Quarter: 2007Q4

REPORT INFORMATION
  Report Type: 
  Country: None (occurrence: None)
  Receive Date: 20071204
  Receipt Date: 20071115
  Transmission Date: 20080405
  Serious: Yes (Other)
  Sender: FDA-Public Use
  Company Number: PHBS2007JP19176

PATIENT

DRUGS (2)
  1. COMTAN [Suspect]
     Indication: PARKINSON'S DISEASE
     Dosage: UNK, UNK
     Route: 048
     Dates: start: 20071111
  2. LEVODOPA [Concomitant]
     Route: 065

REACTIONS (3)
  - ATRIAL FIBRILLATION [None]
  - CHOKING SENSATION [None]
  - TACHYCARDIA [None]
